FAERS Safety Report 11494810 (Version 1)
Quarter: 2015Q3

REPORT INFORMATION
  Report Type: Spontaneous
  Country: US (occurrence: US)
  Receive Date: 20150911
  Receipt Date: 20150911
  Transmission Date: 20151125
  Serious: No
  Sender: FDA-Public Use
  Company Number: US-ROCHE-1013844

PATIENT
  Sex: Female

DRUGS (2)
  1. PEGASYS [Suspect]
     Active Substance: PEGINTERFERON ALFA-2A
     Indication: HEPATITIS C
     Route: 058
     Dates: start: 20110719, end: 20111227
  2. RIBAVIRIN. [Suspect]
     Active Substance: RIBAVIRIN
     Indication: HEPATITIS C
     Route: 048
     Dates: start: 20110719

REACTIONS (12)
  - Cough [Unknown]
  - Irritability [Unknown]
  - Epistaxis [Unknown]
  - Tension [Unknown]
  - Gait disturbance [Unknown]
  - Agitation [Unknown]
  - Disturbance in attention [Unknown]
  - Dry mouth [Unknown]
  - Dysphemia [Unknown]
  - Memory impairment [Unknown]
  - Visual acuity reduced [Unknown]
  - Dyspnoea [Unknown]
